FAERS Safety Report 13952583 (Version 1)
Quarter: 2017Q3

REPORT INFORMATION
  Report Type: Spontaneous
  Country: JP (occurrence: JP)
  Receive Date: 20170911
  Receipt Date: 20170911
  Transmission Date: 20171128
  Serious: No
  Sender: FDA-Public Use
  Company Number: JP-LUPIN PHARMACEUTICALS INC.-2017-02630

PATIENT
  Age: 38 Year
  Sex: Female

DRUGS (1)
  1. AZITHROMYCIN 250MG TABLET [Suspect]
     Active Substance: AZITHROMYCIN ANHYDROUS
     Indication: PERIODONTITIS
     Dosage: 500 MG, QD
     Route: 048
     Dates: start: 20170422, end: 20170423

REACTIONS (2)
  - Drug eruption [Not Recovered/Not Resolved]
  - Vertigo [Not Recovered/Not Resolved]

NARRATIVE: CASE EVENT DATE: 20170423
